FAERS Safety Report 15279981 (Version 1)
Quarter: 2018Q3

REPORT INFORMATION
  Report Type: Spontaneous
  Country: US (occurrence: US)
  Receive Date: 20180815
  Receipt Date: 20180815
  Transmission Date: 20181010
  Serious: No
  Sender: FDA-Public Use
  Company Number: US-TARO-2017TAR00674

PATIENT
  Age: 9 Year
  Sex: Female

DRUGS (1)
  1. CLOBETASOL PROPIONATE CREAM USP 0.05% [Suspect]
     Active Substance: CLOBETASOL PROPIONATE
     Indication: SKIN DISCOLOURATION
     Dosage: UNK, 1X/DAY ONE WEEK ON AND ONE WEEK OFF
     Route: 061
     Dates: start: 20170803, end: 201708

REACTIONS (3)
  - Off label use [Recovered/Resolved]
  - Application site exfoliation [Unknown]
  - Inappropriate schedule of drug administration [Recovered/Resolved]

NARRATIVE: CASE EVENT DATE: 201708
